FAERS Safety Report 24122017 (Version 1)
Quarter: 2024Q3

REPORT INFORMATION
  Report Type: Report from Study
  Country: US (occurrence: US)
  Receive Date: 20240722
  Receipt Date: 20240722
  Transmission Date: 20241017
  Serious: Yes (Other)
  Sender: MAYNE
  Company Number: US-MAYNE PHARMA-2024MYN000253

PATIENT

DRUGS (5)
  1. BIJUVA [Suspect]
     Active Substance: ESTRADIOL\PROGESTERONE
     Indication: Menopause
     Dosage: 1 CAPSULE, QD AT BEDTIME
     Route: 048
  2. BIJUVA [Suspect]
     Active Substance: ESTRADIOL\PROGESTERONE
     Indication: Menopausal symptoms
  3. ADVAIR HFA [Concomitant]
     Active Substance: FLUTICASONE PROPIONATE\SALMETEROL XINAFOATE
     Indication: Product used for unknown indication
     Route: 065
  4. VITAMINS [Concomitant]
     Active Substance: VITAMINS
     Indication: Product used for unknown indication
     Route: 065
  5. VITAMIN B1 [VITAMIN B1 NOS] [Concomitant]
     Indication: Product used for unknown indication
     Route: 065

REACTIONS (5)
  - Bipolar disorder [Unknown]
  - Sedation [Unknown]
  - Nausea [Unknown]
  - Weight increased [Unknown]
  - Feeling abnormal [Unknown]
